FAERS Safety Report 19124963 (Version 1)
Quarter: 2021Q2

REPORT INFORMATION
  Report Type: Spontaneous
  Country: DE (occurrence: DE)
  Receive Date: 20210413
  Receipt Date: 20210413
  Transmission Date: 20210717
  Serious: No
  Sender: FDA-Public Use
  Company Number: DE-GW PHARMA-202104DEGW01484

PATIENT

DRUGS (17)
  1. EPIDYOLEX [Suspect]
     Active Substance: CANNABIDIOL
     Dosage: 1350 MILLIGRAM
     Route: 048
     Dates: start: 202101
  2. VALPROIC ACID. [Concomitant]
     Active Substance: VALPROIC ACID
     Dosage: 900 MILLIGRAM
     Route: 065
     Dates: start: 201808, end: 2018
  3. LAMOTRIGINE. [Concomitant]
     Active Substance: LAMOTRIGINE
     Indication: SEIZURE
     Dosage: 300 MILLIGRAM
     Route: 065
     Dates: start: 201806, end: 2018
  4. RUFINAMIDE [Concomitant]
     Active Substance: RUFINAMIDE
     Dosage: 800 MILLIGRAM
     Route: 065
     Dates: start: 201812
  5. CLOBAZAM. [Concomitant]
     Active Substance: CLOBAZAM
     Indication: SEIZURE
     Dosage: UNK (5 UNITS UNKNOWN)
     Route: 065
     Dates: start: 201809
  6. EPIDYOLEX [Suspect]
     Active Substance: CANNABIDIOL
     Indication: LENNOX-GASTAUT SYNDROME
     Dosage: 350 MILLIGRAM
     Route: 048
     Dates: start: 201809, end: 2018
  7. LAMOTRIGINE. [Concomitant]
     Active Substance: LAMOTRIGINE
     Dosage: 325 MILLIGRAM
     Route: 065
     Dates: start: 201808
  8. PERAMPANEL [Concomitant]
     Active Substance: PERAMPANEL
     Dosage: 2 (UNIT UNKNOWN)
     Route: 065
     Dates: start: 202101
  9. PERAMPANEL [Concomitant]
     Active Substance: PERAMPANEL
     Dosage: 4 (UNIT UNKNOWN)
     Route: 065
     Dates: start: 201810
  10. EPIDYOLEX [Suspect]
     Active Substance: CANNABIDIOL
     Dosage: 400 MILLIGRAM
     Route: 048
     Dates: start: 201810, end: 2018
  11. RUFINAMIDE [Concomitant]
     Active Substance: RUFINAMIDE
     Indication: SEIZURE
     Dosage: 1600 MILLIGRAM
     Route: 065
     Dates: start: 201806, end: 2018
  12. VALPROIC ACID. [Concomitant]
     Active Substance: VALPROIC ACID
     Indication: SEIZURE
     Dosage: 450 MILLIGRAM
     Route: 065
     Dates: start: 201806, end: 2018
  13. RUFINAMIDE [Concomitant]
     Active Substance: RUFINAMIDE
     Dosage: 1200 MILLIGRAM
     Route: 065
     Dates: start: 201808, end: 2018
  14. EPIDYOLEX [Suspect]
     Active Substance: CANNABIDIOL
     Dosage: 800 MILLIGRAM
     Route: 048
     Dates: start: 201812, end: 2020
  15. EPIDYOLEX [Suspect]
     Active Substance: CANNABIDIOL
     Dosage: 1300 MILLIGRAM
     Route: 048
     Dates: start: 202007
  16. VALPROIC ACID. [Concomitant]
     Active Substance: VALPROIC ACID
     Dosage: 750 MILLIGRAM
     Route: 065
     Dates: start: 201812
  17. PERAMPANEL [Concomitant]
     Active Substance: PERAMPANEL
     Indication: SEIZURE
     Dosage: 2 (UNIT UNKNOWN)
     Route: 065
     Dates: start: 201808, end: 2018

REACTIONS (2)
  - Seizure [Recovering/Resolving]
  - Seizure [Recovering/Resolving]

NARRATIVE: CASE EVENT DATE: 201809
